FAERS Safety Report 6792413-8 (Version None)
Quarter: 2010Q2

REPORT INFORMATION
  Report Type: 
  Country: None (occurrence: None)
  Receive Date: 20100624
  Receipt Date: 20080821
  Transmission Date: 20101027
  Serious: No
  Sender: FDA-Public Use
  Company Number: US-PFIZER INC-2008064331

PATIENT
  Sex: Male
  Weight: 72.57 kg

DRUGS (2)
  1. XALATAN [Suspect]
     Indication: GLAUCOMA
     Dates: start: 20051119
  2. TIMOPTIC [Concomitant]

REACTIONS (2)
  - EYE IRRITATION [None]
  - MIDDLE INSOMNIA [None]
